FAERS Safety Report 6907168-3 (Version None)
Quarter: 2010Q3

REPORT INFORMATION
  Report Type: 
  Country: None (occurrence: None)
  Receive Date: 20100804
  Receipt Date: 20090925
  Transmission Date: 20110219
  Serious: No
  Sender: FDA-Public Use
  Company Number: US-PFIZER INC-2009276521

PATIENT
  Sex: Female

DRUGS (6)
  1. SELZENTRY [Suspect]
     Indication: HIV INFECTION
     Dosage: 300 MG, 2X/DAY
     Dates: start: 20090901, end: 20090901
  2. PREZISTA [Concomitant]
     Dosage: 2X/DAY
  3. NORVIR [Concomitant]
     Dosage: 2X/DAY
  4. ISENTRESS [Concomitant]
     Dosage: 2X/DAY
  5. BACTRIM DS [Concomitant]
     Dosage: DAILY
  6. ZITHROMAX [Concomitant]
     Dosage: 1200 MG, WEEKLY

REACTIONS (1)
  - ABDOMINAL PAIN UPPER [None]
